FAERS Safety Report 24526442 (Version 4)
Quarter: 2025Q1

REPORT INFORMATION
  Report Type: Spontaneous
  Country: US (occurrence: US)
  Receive Date: 20241021
  Receipt Date: 20250109
  Transmission Date: 20250408
  Serious: Yes (Other)
  Sender: BIOVITRUM
  Company Number: US-BIOVITRUM-2024-US-013215

PATIENT
  Age: 63 Year
  Sex: Male

DRUGS (1)
  1. VONJO [Suspect]
     Active Substance: PACRITINIB
     Indication: Myelofibrosis
     Route: 048
     Dates: start: 202408

REACTIONS (9)
  - Tongue dry [Unknown]
  - Lip dry [Unknown]
  - Dry skin [Unknown]
  - Myelodysplastic syndrome [Unknown]
  - Full blood count decreased [Unknown]
  - Neuropathy peripheral [Unknown]
  - Intentional dose omission [Unknown]
  - Constipation [Unknown]
  - Laboratory test abnormal [Not Recovered/Not Resolved]
